FAERS Safety Report 9360528 (Version 2)
Quarter: 2013Q3

REPORT INFORMATION
  Report Type: Spontaneous
  Country: US (occurrence: US)
  Receive Date: 20130621
  Receipt Date: 20130726
  Transmission Date: 20140515
  Serious: Yes (Other)
  Sender: FDA-Public Use
  Company Number: US-SANOFI-AVENTIS-2013SA061645

PATIENT
  Age: 67 Year
  Sex: Female
  Weight: 111 kg

DRUGS (4)
  1. LANTUS SOLOSTAR [Suspect]
     Indication: TYPE 2 DIABETES MELLITUS
  2. SOLOSTAR [Suspect]
     Indication: TYPE 2 DIABETES MELLITUS
  3. APIDRA SOLOSTAR [Suspect]
  4. SOLOSTAR [Suspect]

REACTIONS (2)
  - Macular degeneration [Unknown]
  - Visual impairment [Unknown]
